FAERS Safety Report 24180848 (Version 1)
Quarter: 2024Q3

REPORT INFORMATION
  Report Type: Spontaneous
  Country: CO (occurrence: CO)
  Receive Date: 20240806
  Receipt Date: 20240806
  Transmission Date: 20241017
  Serious: Yes (Other)
  Sender: ELI LILLY AND CO
  Company Number: CO-ELI_LILLY_AND_COMPANY-CO202408002290

PATIENT
  Sex: Female

DRUGS (1)
  1. TALTZ [Suspect]
     Active Substance: IXEKIZUMAB
     Indication: Pustular psoriasis
     Dosage: 160 MG, OTHER (LOADING DOSE)
     Route: 065

REACTIONS (3)
  - Erythema multiforme [Unknown]
  - Drug reaction with eosinophilia and systemic symptoms [Unknown]
  - Injection site reaction [Unknown]
